FAERS Safety Report 11986568 (Version 1)
Quarter: 2016Q1

REPORT INFORMATION
  Report Type: Spontaneous
  Country: US (occurrence: US)
  Receive Date: 20160202
  Receipt Date: 20160202
  Transmission Date: 20160526
  Serious: No
  Sender: FDA-Public Use
  Company Number: US-UCBSA-2015001401

PATIENT

DRUGS (3)
  1. LEVETIRACETAM. [Suspect]
     Active Substance: LEVETIRACETAM
     Indication: PETIT MAL EPILEPSY
     Dosage: UNKNOWN DOSE
  2. ALEVE [Concomitant]
     Active Substance: NAPROXEN SODIUM
     Indication: PETIT MAL EPILEPSY
     Dosage: UNKNOWN DOSE
  3. CARBAMAZEPINE. [Concomitant]
     Active Substance: CARBAMAZEPINE
     Indication: PETIT MAL EPILEPSY
     Dosage: UNKNOWN DOSE

REACTIONS (1)
  - Adverse drug reaction [Unknown]
